FAERS Safety Report 6638877-1 (Version None)
Quarter: 2010Q1

REPORT INFORMATION
  Report Type: 
  Country: None (occurrence: None)
  Receive Date: 20100317
  Receipt Date: 20100308
  Transmission Date: 20100710
  Serious: Yes (Hospitalization)
  Sender: FDA-Public Use
  Company Number: GXKR2010US02723

PATIENT
  Age: 65 Year
  Sex: Female

DRUGS (4)
  1. PACLITAXEL (NGX) [Suspect]
     Indication: BREAST CANCER STAGE II
     Route: 065
  2. DOXORUBICIN (NGX) [Suspect]
     Indication: BREAST CANCER STAGE II
     Route: 065
  3. CYCLOPHOSPHAMIDE [Suspect]
     Indication: BREAST CANCER STAGE II
     Route: 065
  4. RADIATION THERAPY [Suspect]
     Route: 065

REACTIONS (2)
  - ACUTE MYELOMONOCYTIC LEUKAEMIA [None]
  - EOSINOPHILIA [None]
